FAERS Safety Report 5642839-0 (Version None)
Quarter: 2008Q1

REPORT INFORMATION
  Report Type: 
  Country: None (occurrence: None)
  Receive Date: 20080228
  Receipt Date: 20080225
  Transmission Date: 20080703
  Serious: Yes (Other)
  Sender: FDA-Public Use
  Company Number: JP-GENENTECH-255431

PATIENT

DRUGS (7)
  1. RITUXAN [Suspect]
     Indication: NON-HODGKIN'S LYMPHOMA
     Dosage: 375 MG/M2, Q3W
     Route: 042
  2. CYCLOPHOSPHAMIDE [Concomitant]
     Indication: NON-HODGKIN'S LYMPHOMA
     Dosage: 1200 MG, Q3W
     Route: 042
  3. CYTARABINE [Concomitant]
     Indication: NON-HODGKIN'S LYMPHOMA
     Dosage: 2 G/M2, Q3W
     Route: 042
  4. ETOPOSIDE [Concomitant]
     Indication: NON-HODGKIN'S LYMPHOMA
     Dosage: 100 MG/M2, UNK
  5. DEXAMETHASONE TAB [Concomitant]
     Indication: NON-HODGKIN'S LYMPHOMA
     Dosage: 40 MG, Q3W
  6. ANTIHISTAMINE (UNK INGREDIENTS) [Concomitant]
     Indication: PREMEDICATION
  7. ANTIPYRETIC NOS [Concomitant]
     Indication: PREMEDICATION

REACTIONS (1)
  - FEBRILE NEUTROPENIA [None]
